FAERS Safety Report 5507015-0 (Version None)
Quarter: 2007Q4

REPORT INFORMATION
  Report Type: 
  Country: None (occurrence: None)
  Receive Date: 20071105
  Receipt Date: 20071025
  Transmission Date: 20080405
  Serious: Yes (Other)
  Sender: FDA-Public Use
  Company Number: US-BOEHRINGER INGELHEIM PHARMACEUTICALS, INC.-2007-DE-06320GD

PATIENT
  Sex: Female

DRUGS (1)
  1. CLONIDINE [Suspect]
     Indication: TOURETTE'S DISORDER

REACTIONS (1)
  - DRUG INEFFECTIVE [None]
